FAERS Safety Report 8482019-7 (Version None)
Quarter: 2012Q3

REPORT INFORMATION
  Report Type: 
  Country: None (occurrence: None)
  Receive Date: 20120702
  Receipt Date: 20120627
  Transmission Date: 20120928
  Serious: Yes (Hospitalization, Other)
  Sender: FDA-Public Use
  Company Number: PHHY2011CA18345

PATIENT
  Sex: Female

DRUGS (14)
  1. LEVOTHYROXINE SODIUM [Concomitant]
     Dosage: 150 MG, QD
     Route: 048
  2. CALCIUM [Concomitant]
  3. VITAMIN D [Concomitant]
  4. ACTONEL [Concomitant]
     Dosage: 35 MG, UNK
     Route: 048
  5. EXJADE [Suspect]
     Dosage: 1650 MG, QD
     Route: 048
  6. ATROVENT [Concomitant]
  7. PLATELETS [Concomitant]
  8. LEVOTHYROXINE SODIUM [Concomitant]
     Dosage: 0.15 MG, QD
     Route: 048
  9. DESFERAL [Suspect]
     Route: 042
  10. MAGNESIUM OXIDE [Concomitant]
  11. EXJADE [Suspect]
     Dosage: 1000 MG, UNK
     Route: 048
  12. METOPROLOL SUCCINATE [Concomitant]
     Dosage: 12.5 MG, BID
     Route: 048
  13. EXJADE [Suspect]
     Indication: APLASTIC ANAEMIA
     Dosage: 1650 MG, QD
     Route: 048
     Dates: start: 20091001, end: 20110401
  14. VENTOLIN [Concomitant]

REACTIONS (5)
  - DIARRHOEA [None]
  - VISUAL IMPAIRMENT [None]
  - SEPSIS [None]
  - SERUM FERRITIN INCREASED [None]
  - ABDOMINAL DISCOMFORT [None]
